FAERS Safety Report 6875135-4 (Version None)
Quarter: 2010Q3

REPORT INFORMATION
  Report Type: 
  Country: None (occurrence: None)
  Receive Date: 20100727
  Receipt Date: 20080616
  Transmission Date: 20110219
  Serious: Yes (Death, Other)
  Sender: FDA-Public Use
  Company Number: US-PFIZER INC-2007042491

PATIENT
  Sex: Male
  Weight: 86 kg

DRUGS (1)
  1. CELEBREX [Suspect]
     Indication: JOINT SWELLING
     Dates: start: 20000101, end: 20000428

REACTIONS (2)
  - CEREBROVASCULAR DISORDER [None]
  - MYOCARDIAL INFARCTION [None]
